FAERS Safety Report 6526045-3 (Version None)
Quarter: 2010Q1

REPORT INFORMATION
  Report Type: 
  Country: None (occurrence: None)
  Receive Date: 20100104
  Receipt Date: 20091221
  Transmission Date: 20100710
  Serious: Yes (Hospitalization)
  Sender: FDA-Public Use
  Company Number: GB-MYLANLABS-2009S1021692

PATIENT
  Age: 9 Year
  Sex: Male

DRUGS (6)
  1. CLOBAZAM [Suspect]
     Indication: EPILEPSY
  2. VALPROIC ACID [Suspect]
     Indication: EPILEPSY
  3. LEVETIRACETAM [Suspect]
     Indication: EPILEPSY
  4. LAMOTRIGINE [Concomitant]
     Indication: EPILEPSY
  5. ETHOSUXIMIDE [Concomitant]
     Indication: EPILEPSY
  6. PREDNISOLONE [Concomitant]
     Indication: EPILEPSY

REACTIONS (6)
  - BLISTER [None]
  - HEPATIC FUNCTION ABNORMAL [None]
  - KLEBSIELLA INFECTION [None]
  - OEDEMA [None]
  - SOMNOLENCE [None]
  - SWEAT GLAND DISORDER [None]
